FAERS Safety Report 18747670 (Version 2)
Quarter: 2021Q1

REPORT INFORMATION
  Report Type: Report from Study
  Country: US (occurrence: US)
  Receive Date: 20210115
  Receipt Date: 20210203
  Transmission Date: 20210419
  Serious: Yes (Hospitalization)
  Sender: FDA-Public Use
  Company Number: US-EMD SERONO-9186578

PATIENT
  Age: 56 Year
  Sex: Female

DRUGS (2)
  1. MAVENCLAD [Suspect]
     Active Substance: CLADRIBINE
     Dosage: YEAR ONE MONTH TWO THERAPY: 20 MG FOR 1 TO 2, 10 MG FOR 3 TO 5 DAYS
     Route: 048
     Dates: start: 20200825, end: 20200829
  2. MAVENCLAD [Suspect]
     Active Substance: CLADRIBINE
     Indication: MULTIPLE SCLEROSIS
     Dosage: YEAR ONE MONTH ONE THERAPY: 20 MG FOR 1 TO 2, 10 MG FOR 3 TO 5 DAYS
     Route: 048
     Dates: start: 20200729, end: 20200802

REACTIONS (6)
  - Weight increased [Unknown]
  - Headache [Unknown]
  - Burning sensation [Not Recovered/Not Resolved]
  - Oedema peripheral [Not Recovered/Not Resolved]
  - Pharyngeal oedema [Not Recovered/Not Resolved]
  - Localised infection [Unknown]

NARRATIVE: CASE EVENT DATE: 202008
